FAERS Safety Report 5045674-X (Version None)
Quarter: 2006Q3

REPORT INFORMATION
  Report Type: 
  Country: None (occurrence: None)
  Receive Date: 20060707
  Receipt Date: 20060327
  Transmission Date: 20061208
  Serious: Yes (Hospitalization)
  Sender: FDA-Public Use
  Company Number: DE-ABBOTT-06P-062-0329158-00

PATIENT
  Sex: Male

DRUGS (8)
  1. HUMIRA [Suspect]
     Indication: RHEUMATOID ARTHRITIS
     Route: 058
     Dates: start: 20051001
  2. PREDNISONE TAB [Suspect]
     Indication: RHEUMATOID ARTHRITIS
     Route: 048
  3. AZATHIOPRINE [Suspect]
     Indication: RHEUMATOID ARTHRITIS
     Route: 048
  4. CORTISONE [Concomitant]
     Indication: DRUG USE FOR UNKNOWN INDICATION
     Route: 048
     Dates: start: 20051001, end: 20051001
  5. CORTISONE [Concomitant]
     Dates: start: 20051001
  6. AZATHIOPRINE [Concomitant]
     Indication: DRUG USE FOR UNKNOWN INDICATION
     Dates: start: 20051001
  7. CALCIUM GLUCONATE [Concomitant]
     Indication: OSTEOPENIA
  8. ERGOCALCIFEROL [Concomitant]
     Indication: OSTEOPENIA
     Dates: start: 20051001

REACTIONS (2)
  - ASTHENIA [None]
  - LYMPH NODE TUBERCULOSIS [None]
